FAERS Safety Report 4883654-5 (Version None)
Quarter: 2006Q1

REPORT INFORMATION
  Report Type: 
  Country: None (occurrence: None)
  Receive Date: 20060117
  Receipt Date: 20060117
  Transmission Date: 20060701
  Serious: Yes (Life-Threatening, Hospitalization)
  Sender: FDA-Public Use
  Company Number: None

PATIENT
  Age: 44 Year
  Sex: Female
  Weight: 70.3075 kg

DRUGS (2)
  1. PROTONIX [Suspect]
     Indication: DYSPEPSIA
     Dosage: 40MG   DAILY   PO
     Route: 048
     Dates: start: 20050602, end: 20050603
  2. PROTONIX [Suspect]
     Indication: DYSPEPSIA
     Dosage: 40MG   DAILY   PO
     Route: 048
     Dates: start: 20050814, end: 20050815

REACTIONS (5)
  - ANAPHYLACTIC REACTION [None]
  - BLOOD PRESSURE DECREASED [None]
  - BRADYCARDIA [None]
  - ERYTHEMA [None]
  - FLUSHING [None]
